FAERS Safety Report 10783761 (Version 1)
Quarter: 2015Q1

REPORT INFORMATION
  Report Type: Spontaneous
  Country: US (occurrence: US)
  Receive Date: 20150210
  Receipt Date: 20150210
  Transmission Date: 20150721
  Serious: No
  Sender: FDA-Public Use
  Company Number: US-009507513-1502USA001117

PATIENT
  Age: 13 Year
  Sex: Male

DRUGS (1)
  1. VITAMINS A AND D OINTMENT [Suspect]
     Active Substance: PETROLATUM
     Indication: STOMA CARE
     Dosage: UNK, UNKNOWN
     Route: 061

REACTIONS (2)
  - Off label use [Unknown]
  - Drug administered at inappropriate site [Unknown]
